FAERS Safety Report 20394353 (Version 7)
Quarter: 2023Q2

REPORT INFORMATION
  Report Type: Report from Study
  Country: US (occurrence: US)
  Receive Date: 20220129
  Receipt Date: 20230629
  Transmission Date: 20230722
  Serious: No
  Sender: FDA-Public Use
  Company Number: US-NOVARTISTESTPH-NVSC2022US019134

PATIENT
  Sex: Female
  Weight: 103.4 kg

DRUGS (6)
  1. TREPROSTINIL [Suspect]
     Active Substance: TREPROSTINIL
     Indication: Pulmonary arterial hypertension
     Dosage: UNK UNK, CONT, (40 NG/KG/ MIN)
     Route: 058
     Dates: start: 20210701
  2. TREPROSTINIL [Suspect]
     Active Substance: TREPROSTINIL
     Dosage: UNK
     Route: 065
  3. TREPROSTINIL [Suspect]
     Active Substance: TREPROSTINIL
     Dosage: UNK UNK, CONT, (40 NG/KG/ MIN)
     Route: 058
     Dates: start: 20210701
  4. TREPROSTINIL [Suspect]
     Active Substance: TREPROSTINIL
     Dosage: UNK UNK, CONT, (40 NG/KG/ MIN)
     Route: 058
     Dates: start: 20210701
  5. OPSUMIT [Concomitant]
     Active Substance: MACITENTAN
     Indication: Product used for unknown indication
     Dosage: UNK
     Route: 065
  6. REVATIO [Concomitant]
     Active Substance: SILDENAFIL CITRATE
     Indication: Product used for unknown indication
     Dosage: UNK
     Route: 065

REACTIONS (8)
  - Lung disorder [Unknown]
  - Sinusitis [Unknown]
  - Nasopharyngitis [Unknown]
  - Oral fungal infection [Unknown]
  - Injection site erythema [Unknown]
  - Injection site swelling [Unknown]
  - Injection site pain [Unknown]
  - Injection site haemorrhage [Unknown]
